FAERS Safety Report 5520195-6 (Version None)
Quarter: 2007Q4

REPORT INFORMATION
  Report Type: 
  Country: None (occurrence: None)
  Receive Date: 20071116
  Receipt Date: 20071106
  Transmission Date: 20080405
  Serious: Yes (Life-Threatening, Hospitalization, Disabling)
  Sender: FDA-Public Use
  Company Number: US-GENENTECH-250742

PATIENT

DRUGS (2)
  1. AVASTIN [Suspect]
     Indication: RENAL CELL CARCINOMA STAGE UNSPECIFIED
     Dosage: 700 UNIT, Q2W
     Route: 042
     Dates: start: 20070825, end: 20070901
  2. ANALGESICS [Suspect]

REACTIONS (1)
  - SEPTIC SHOCK [None]
